FAERS Safety Report 4642268-2 (Version None)
Quarter: 2005Q2

REPORT INFORMATION
  Report Type: 
  Country: None (occurrence: None)
  Receive Date: 20050422
  Receipt Date: 20050412
  Transmission Date: 20051028
  Serious: Yes (Life-Threatening, Other)
  Sender: FDA-Public Use
  Company Number: BE-AMGEN-UK126206

PATIENT
  Sex: Male

DRUGS (15)
  1. DARBEPOETIN ALFA [Suspect]
     Indication: CARDIAC FAILURE CONGESTIVE
     Route: 058
     Dates: start: 20040922
  2. ZESTRIL [Concomitant]
     Route: 048
     Dates: start: 20021119
  3. CARVEDILOL [Concomitant]
     Route: 048
     Dates: start: 20021123
  4. BURINEX [Concomitant]
     Route: 048
     Dates: start: 20021123
  5. HYGROTON [Concomitant]
     Route: 048
     Dates: start: 20040209
  6. LANOXIN [Concomitant]
     Route: 048
     Dates: start: 20041225
  7. FOLIC ACID [Concomitant]
     Route: 048
     Dates: start: 20041225
  8. MARCOUMAR [Concomitant]
     Route: 048
     Dates: start: 20030823
  9. ASPIRIN [Concomitant]
     Route: 065
     Dates: start: 20021119
  10. ZOCOR [Concomitant]
     Route: 048
     Dates: start: 20050105
  11. OMEPRAZOLE [Concomitant]
     Route: 048
     Dates: start: 20031223
  12. FERROUS GLUCONATE [Concomitant]
     Route: 065
  13. ATACAND [Concomitant]
     Route: 065
  14. EPHEDRINE SUL CAP [Concomitant]
     Route: 065
  15. ZANTAC [Concomitant]
     Route: 042
     Dates: start: 20041220

REACTIONS (4)
  - ANGINA PECTORIS [None]
  - DIZZINESS [None]
  - DYSPNOEA EXERTIONAL [None]
  - VENTRICULAR TACHYCARDIA [None]
